FAERS Safety Report 9469336 (Version 1)
Quarter: 2013Q3

REPORT INFORMATION
  Report Type: Report from Study
  Country: DE (occurrence: DE)
  Receive Date: 20130821
  Receipt Date: 20130821
  Transmission Date: 20140515
  Serious: Yes (Hospitalization, Other)
  Sender: FDA-Public Use
  Company Number: PHHY2013DE089384

PATIENT
  Sex: Female
  Weight: 72 kg

DRUGS (7)
  1. STI571 [Suspect]
     Indication: CHRONIC MYELOID LEUKAEMIA
     Dosage: 400 MG,(1-0-0-0)
     Route: 048
  2. BELOC-ZOC MITE [Concomitant]
     Dosage: 47.5 MG, (2-0-1-0)
     Route: 048
  3. VESDIL [Concomitant]
     Dosage: 5 MG, (1-0-1-0)
     Route: 048
  4. NORVASC [Concomitant]
     Dosage: 5 MG, (1-0-0-0)
     Route: 048
  5. PANTOZOL [Concomitant]
     Dosage: 20 MG,(1-0-0-0)
     Route: 048
  6. TOREM [Concomitant]
     Dosage: 10 MG, (1-0-0-0)
     Route: 048
  7. FRAGMIN [Concomitant]
     Dosage: UNK UKN, 10000E/ML(0,7-0-0,7-0)
     Route: 058

REACTIONS (15)
  - Atrial fibrillation [Unknown]
  - Tachycardia [Unknown]
  - Aortic aneurysm [Recovered/Resolved]
  - Aortic valve incompetence [Unknown]
  - Mitral valve incompetence [Unknown]
  - Pulmonary valve incompetence [Unknown]
  - Tricuspid valve incompetence [Unknown]
  - Pleural effusion [Unknown]
  - Atelectasis [Unknown]
  - Anaemia postoperative [Unknown]
  - Coronary artery restenosis [Unknown]
  - Arteriosclerosis coronary artery [Unknown]
  - Kyphosis [Unknown]
  - Osteochondrosis [Unknown]
  - Spinal osteoarthritis [Unknown]
